FAERS Safety Report 5986324-5 (Version None)
Quarter: 2008Q4

REPORT INFORMATION
  Report Type: 
  Country: None (occurrence: None)
  Receive Date: 20081209
  Receipt Date: 20080407
  Transmission Date: 20090506
  Serious: No
  Sender: FDA-Public Use
  Company Number: US-AMGEN-KDL271806

PATIENT
  Sex: Female

DRUGS (1)
  1. ENBREL [Suspect]
     Indication: JUVENILE ARTHRITIS
     Route: 058
     Dates: start: 20080304

REACTIONS (4)
  - FEELING ABNORMAL [None]
  - INSOMNIA [None]
  - MUSCLE TWITCHING [None]
  - RESTLESSNESS [None]
